FAERS Safety Report 10223355 (Version 1)
Quarter: 2014Q2

REPORT INFORMATION
  Report Type: Spontaneous
  Country: US (occurrence: US)
  Receive Date: 20140609
  Receipt Date: 20140609
  Transmission Date: 20141212
  Serious: No
  Sender: FDA-Public Use
  Company Number: US-DRREDDYS-USA/USA/13/0029675

PATIENT
  Age: 73 Year
  Sex: Female
  Weight: 99.7 kg

DRUGS (1)
  1. FEXOFENADINE HCL  OTC [Suspect]
     Indication: URTICARIA
     Route: 048
     Dates: start: 201302

REACTIONS (3)
  - Diarrhoea [Unknown]
  - Erythema [Unknown]
  - Swelling [Unknown]
